FAERS Safety Report 8963450 (Version 1)
Quarter: 2012Q4

REPORT INFORMATION
  Report Type: 
  Country: MX (occurrence: MX)
  Receive Date: 20121214
  Receipt Date: 20121214
  Transmission Date: 20130627
  Serious: Yes (Other)
  Sender: FDA-Public Use
  Company Number: MX-AMGEN-MEXSP2012079920

PATIENT
  Age: 61 Year
  Sex: Female

DRUGS (4)
  1. PROLIA [Suspect]
     Indication: OSTEOPOROSIS
     Dosage: UNK
     Dates: start: 20120413
  2. ZYLOPRIN [Concomitant]
  3. PANTOZOL [Concomitant]
  4. VYTORIN [Concomitant]
     Dosage: UNK
     Dates: start: 201202

REACTIONS (7)
  - Syncope [Unknown]
  - Hot flush [Unknown]
  - Headache [Unknown]
  - Vomiting [Unknown]
  - Hypotension [Unknown]
  - Somnolence [Unknown]
  - Vertigo [Unknown]
